FAERS Safety Report 13982820 (Version 1)
Quarter: 2017Q3

REPORT INFORMATION
  Report Type: Spontaneous
  Country: DE (occurrence: DE)
  Receive Date: 20170918
  Receipt Date: 20170918
  Transmission Date: 20171128
  Serious: Yes (Hospitalization, Other)
  Sender: FDA-Public Use
  Company Number: DE-SHIRE-DE201722300

PATIENT

DRUGS (1)
  1. 476 (MESALAZINE/MESALAMINE) [Suspect]
     Active Substance: MESALAMINE
     Indication: COLITIS ULCERATIVE
     Dosage: 1200 MG, 1X/DAY:QD,2 DF DOSAGE FORM EVERY DAYS,18 DF DOSAGE FORM,1 DF DOSAGE FORM,2 IN 1 DAY
     Route: 048
     Dates: start: 20170807, end: 20170818

REACTIONS (2)
  - Myocarditis [Recovered/Resolved]
  - Acute left ventricular failure [Recovered/Resolved]

NARRATIVE: CASE EVENT DATE: 20170815
